FAERS Safety Report 6003455-4 (Version None)
Quarter: 2008Q4

REPORT INFORMATION
  Report Type: 
  Country: None (occurrence: None)
  Receive Date: 20081215
  Receipt Date: 20081215
  Transmission Date: 20090506
  Serious: No
  Sender: FDA-Public Use
  Company Number: None

PATIENT
  Age: 32 Year
  Sex: Female
  Weight: 49.8957 kg

DRUGS (1)
  1. TERBINAFINE 250MG/DAY APOTEX USA [Suspect]
     Indication: ONYCHOMYCOSIS
     Dosage: 250MG 1 PER DAY PO
     Route: 048
     Dates: start: 20080715, end: 20080812

REACTIONS (2)
  - SKIN REACTION [None]
  - URTICARIA [None]
